FAERS Safety Report 5821440-X (Version None)
Quarter: 2008Q3

REPORT INFORMATION
  Report Type: 
  Country: None (occurrence: None)
  Receive Date: 20080724
  Receipt Date: 20080723
  Transmission Date: 20090109
  Serious: Yes (Other)
  Sender: FDA-Public Use
  Company Number: A0739100A

PATIENT
  Age: 40 Year
  Sex: Male

DRUGS (6)
  1. COREG [Suspect]
     Indication: DRUG USE FOR UNKNOWN INDICATION
     Dosage: 6.25MG TWICE PER DAY
     Route: 048
     Dates: start: 20060101
  2. CARVEDILOL [Suspect]
     Indication: DRUG USE FOR UNKNOWN INDICATION
     Dosage: 6.25MG TWICE PER DAY
     Route: 048
  3. PLAVIX [Concomitant]
  4. ASPIRIN [Concomitant]
  5. ZOCOR [Concomitant]
  6. COMBIGAN [Concomitant]

REACTIONS (4)
  - ANGIOPATHY [None]
  - OPTIC NERVE DISORDER [None]
  - PERIPHERAL COLDNESS [None]
  - WEIGHT DECREASED [None]
